FAERS Safety Report 9571447 (Version 3)
Quarter: 2014Q2

REPORT INFORMATION
  Report Type: Report from Study
  Country: CA (occurrence: CA)
  Receive Date: 20131001
  Receipt Date: 20140401
  Transmission Date: 20141212
  Serious: Yes (Other)
  Sender: FDA-Public Use
  Company Number: CA-ALEXION PHARMACEUTICALS INC.-A201302430

PATIENT
  Age: 24 Year
  Sex: Male
  Weight: 95.2 kg

DRUGS (10)
  1. SOLIRIS [Suspect]
     Indication: PAROXYSMAL NOCTURNAL HAEMOGLOBINURIA
     Dosage: 600 MG, QW
     Route: 042
     Dates: start: 20130408, end: 20130502
  2. SOLIRIS [Suspect]
     Dosage: 900 MG, Q2W
     Route: 042
     Dates: start: 20130509
  3. HYDROMORPHONE [Concomitant]
     Indication: PAIN MANAGEMENT
     Dosage: 2 MG, PRN
     Route: 048
     Dates: start: 20130408
  4. BENADRYL [Concomitant]
     Indication: PREMEDICATION
     Dosage: 50 MG, PRN
     Route: 042
     Dates: start: 20130403
  5. ATIVAN [Concomitant]
     Indication: SEDATIVE THERAPY
     Dosage: 1 MG, PRN, HS
     Route: 048
     Dates: start: 20130402
  6. ATIVAN [Concomitant]
     Indication: ANXIOLYTIC THERAPY
  7. GRAVOL [Concomitant]
     Indication: PREMEDICATION
     Dosage: 50 MG, PRN
     Route: 042
     Dates: start: 20130402
  8. SOLUCORTEF [Concomitant]
     Indication: PREMEDICATION
     Dosage: 50 MG, PRN
     Route: 042
     Dates: start: 20130403
  9. PANTOLOC [Concomitant]
     Indication: PROPHYLAXIS
     Dosage: 40 MG, QD
     Route: 048
     Dates: start: 20130509
  10. SERAX [Concomitant]
     Indication: INSOMNIA
     Dosage: 15 MG, PRN HS
     Route: 048
     Dates: start: 20130509

REACTIONS (3)
  - Platelet count decreased [Not Recovered/Not Resolved]
  - Haemoglobin decreased [Not Recovered/Not Resolved]
  - Abdominal pain [Not Recovered/Not Resolved]
